FAERS Safety Report 12866965 (Version 1)
Quarter: 2016Q4

REPORT INFORMATION
  Report Type: Spontaneous
  Country: US (occurrence: US)
  Receive Date: 20161020
  Receipt Date: 20161020
  Transmission Date: 20170207
  Serious: No
  Sender: FDA-Public Use
  Company Number: US-JAZZ-2016-US-014322

PATIENT
  Sex: Female

DRUGS (18)
  1. SEROQUEL [Concomitant]
     Active Substance: QUETIAPINE FUMARATE
  2. XYREM [Suspect]
     Active Substance: SODIUM OXYBATE
     Indication: CATAPLEXY
     Dosage: 4 G, BID
     Route: 048
     Dates: start: 201505, end: 201506
  3. XYREM [Suspect]
     Active Substance: SODIUM OXYBATE
     Indication: NARCOLEPSY
     Dosage: 2.5 G, BID
     Route: 048
     Dates: start: 201504, end: 201505
  4. IBUPROFEN. [Concomitant]
     Active Substance: IBUPROFEN
  5. ZOFRAN [Concomitant]
     Active Substance: ONDANSETRON HYDROCHLORIDE
  6. XYREM [Suspect]
     Active Substance: SODIUM OXYBATE
     Dosage: 5 G, BID
     Route: 048
     Dates: start: 201506
  7. BUPRENORPHINE. [Concomitant]
     Active Substance: BUPRENORPHINE
  8. RELPAX [Concomitant]
     Active Substance: ELETRIPTAN HYDROBROMIDE
  9. TIZANIDINE HCL [Concomitant]
     Active Substance: TIZANIDINE HYDROCHLORIDE
  10. KEPPRA [Concomitant]
     Active Substance: LEVETIRACETAM
  11. VENLAFAXINE HCL [Concomitant]
     Active Substance: VENLAFAXINE HYDROCHLORIDE
  12. DESMOPRESSIN [Concomitant]
     Active Substance: DESMOPRESSIN
  13. PHENTERMINE. [Concomitant]
     Active Substance: PHENTERMINE
  14. SENNA LAXATIVE [Concomitant]
     Active Substance: SENNOSIDES
  15. TRAMADOL HCL [Concomitant]
     Active Substance: TRAMADOL HYDROCHLORIDE
  16. CHLORZOXAZONE. [Concomitant]
     Active Substance: CHLORZOXAZONE
  17. BUSPIRONE HCL [Concomitant]
     Active Substance: BUSPIRONE HYDROCHLORIDE
  18. FLEXERIL [Concomitant]
     Active Substance: CYCLOBENZAPRINE HYDROCHLORIDE

REACTIONS (1)
  - Pain [Unknown]
